FAERS Safety Report 18331395 (Version 2)
Quarter: 2020Q4

REPORT INFORMATION
  Report Type: Spontaneous
  Country: US (occurrence: US)
  Receive Date: 20200930
  Receipt Date: 20201007
  Transmission Date: 20210113
  Serious: Yes (Hospitalization, Other)
  Sender: FDA-Public Use
  Company Number: US-ASTRAZENECA-2020SF25256

PATIENT
  Age: 19536 Day
  Sex: Male

DRUGS (27)
  1. CHANTIX [Concomitant]
     Active Substance: VARENICLINE TARTRATE
  2. OXYCODONE [Concomitant]
     Active Substance: OXYCODONE
  3. TRAMADOL. [Concomitant]
     Active Substance: TRAMADOL
  4. FLUOXETINE [Concomitant]
     Active Substance: FLUOXETINE HYDROCHLORIDE
  5. FARXIGA [Suspect]
     Active Substance: DAPAGLIFLOZIN PROPANEDIOL
     Indication: TYPE 2 DIABETES MELLITUS
     Route: 048
     Dates: start: 20180214
  6. PANTOPRAZOLE [Concomitant]
     Active Substance: PANTOPRAZOLE
  7. CYCLOBENZAPRINE. [Concomitant]
     Active Substance: CYCLOBENZAPRINE
  8. AZITHROMYCIN ANHYDROUS. [Concomitant]
     Active Substance: AZITHROMYCIN ANHYDROUS
  9. FARXIGA [Suspect]
     Active Substance: DAPAGLIFLOZIN PROPANEDIOL
     Indication: BLOOD PRESSURE DECREASED
     Route: 048
     Dates: start: 20150810, end: 20180413
  10. HYDROCODONE [Concomitant]
     Active Substance: HYDROCODONE
  11. PROAIR HFA [Concomitant]
     Active Substance: ALBUTEROL SULFATE
  12. SULFAMETHOXAZOLE [Concomitant]
     Active Substance: SULFAMETHOXAZOLE
  13. FARXIGA [Suspect]
     Active Substance: DAPAGLIFLOZIN PROPANEDIOL
     Indication: WEIGHT DECREASED
     Route: 048
     Dates: start: 20150810, end: 20180413
  14. FARXIGA [Suspect]
     Active Substance: DAPAGLIFLOZIN PROPANEDIOL
     Indication: BLOOD PRESSURE DECREASED
     Route: 048
     Dates: start: 20180214
  15. PREDNISONE. [Concomitant]
     Active Substance: PREDNISONE
  16. ATORVASTATIN [Concomitant]
     Active Substance: ATORVASTATIN
  17. HYOSCYAMINE. [Concomitant]
     Active Substance: HYOSCYAMINE
  18. SODIUM CHLORIDE. [Concomitant]
     Active Substance: SODIUM CHLORIDE
  19. MORPHINE [Concomitant]
     Active Substance: MORPHINE
  20. PRAVASTATIN. [Concomitant]
     Active Substance: PRAVASTATIN
  21. KLOR-CON [Concomitant]
     Active Substance: POTASSIUM CHLORIDE
  22. CLINDAMYCIN. [Concomitant]
     Active Substance: CLINDAMYCIN
  23. FARXIGA [Suspect]
     Active Substance: DAPAGLIFLOZIN PROPANEDIOL
     Indication: WEIGHT DECREASED
     Route: 048
     Dates: start: 20180214
  24. FARXIGA [Suspect]
     Active Substance: DAPAGLIFLOZIN PROPANEDIOL
     Indication: TYPE 2 DIABETES MELLITUS
     Route: 048
     Dates: start: 20150810, end: 20180413
  25. TERBINAFINE. [Concomitant]
     Active Substance: TERBINAFINE
  26. METFORMIN [Concomitant]
     Active Substance: METFORMIN HYDROCHLORIDE
  27. PROMETHAZINE [Concomitant]
     Active Substance: PROMETHAZINE HYDROCHLORIDE

REACTIONS (9)
  - Abscess [Unknown]
  - Cellulitis of male external genital organ [Unknown]
  - Fournier^s gangrene [Unknown]
  - Pain [Unknown]
  - Anal abscess [Unknown]
  - Scrotal abscess [Unknown]
  - Subcutaneous abscess [Unknown]
  - Perineal abscess [Unknown]
  - Injury [Unknown]

NARRATIVE: CASE EVENT DATE: 20160525
